FAERS Safety Report 4965856-2 (Version None)
Quarter: 2006Q2

REPORT INFORMATION
  Report Type: 
  Country: None (occurrence: None)
  Receive Date: 20060407
  Receipt Date: 20060327
  Transmission Date: 20061013
  Serious: Yes (Other)
  Sender: FDA-Public Use
  Company Number: GB-JNJFOC-20060204892

PATIENT
  Age: 18 Year
  Sex: Female

DRUGS (5)
  1. CONCERTA [Suspect]
     Route: 048
  2. CONCERTA [Suspect]
     Route: 048
  3. CONCERTA [Suspect]
     Route: 048
  4. ORAL CONTRACEPTIVE [Concomitant]
     Indication: CONTRACEPTION
     Route: 048
  5. VALPROATE SODIUM [Concomitant]
     Indication: EPILEPSY
     Route: 065

REACTIONS (5)
  - CONVULSION [None]
  - DRUG INTERACTION [None]
  - EPILEPSY [None]
  - MUSCLE TWITCHING [None]
  - OTITIS MEDIA [None]
